FAERS Safety Report 20081000 (Version 2)
Quarter: 2021Q4

REPORT INFORMATION
  Report Type: Spontaneous
  Country: US (occurrence: US)
  Receive Date: 20211117
  Receipt Date: 20211118
  Transmission Date: 20220303
  Serious: No
  Sender: FDA-Public Use
  Company Number: US-SANOFI-00852225

PATIENT
  Age: 78 Year
  Sex: Male

DRUGS (1)
  1. LANTUS SOLOSTAR [Suspect]
     Active Substance: INSULIN GLARGINE
     Indication: Type 1 diabetes mellitus
     Dosage: 24-32 UNITS
     Route: 058

REACTIONS (3)
  - Blood glucose increased [Unknown]
  - Incorrect dose administered by device [Unknown]
  - Device leakage [Unknown]
